FAERS Safety Report 9133500 (Version 2)
Quarter: 2013Q1

REPORT INFORMATION
  Report Type: Spontaneous
  Country: FR (occurrence: FR)
  Receive Date: 20130301
  Receipt Date: 20130304
  Transmission Date: 20140127
  Serious: Yes (Hospitalization)
  Sender: FDA-Public Use
  Company Number: FR-ABBOTT-13X-056-1056949-00

PATIENT
  Sex: Male

DRUGS (10)
  1. RYTHMOL [Suspect]
     Indication: HYPERTENSION
     Dosage: FREQUENCY: TWICE
     Route: 048
  2. EFFEXOR [Suspect]
     Indication: DEPRESSION
     Route: 048
     Dates: end: 20121205
  3. IXPRIM [Suspect]
     Indication: PAIN
     Route: 048
     Dates: end: 20121205
  4. EUPANTOL [Concomitant]
     Indication: PRODUCT USED FOR UNKNOWN INDICATION
     Route: 048
  5. MOTILIUM [Concomitant]
     Indication: PRODUCT USED FOR UNKNOWN INDICATION
     Route: 048
  6. PRINCI B [Concomitant]
     Indication: PRODUCT USED FOR UNKNOWN INDICATION
     Route: 048
  7. ACTONEL [Concomitant]
     Indication: PRODUCT USED FOR UNKNOWN INDICATION
     Route: 048
  8. AMYCOR [Concomitant]
     Indication: PRODUCT USED FOR UNKNOWN INDICATION
  9. CALCIDOSE VITAMINE D [Concomitant]
     Indication: PRODUCT USED FOR UNKNOWN INDICATION
     Route: 048
  10. LOXEN [Concomitant]
     Indication: PRODUCT USED FOR UNKNOWN INDICATION
     Route: 048

REACTIONS (2)
  - Somnolence [Recovered/Resolved]
  - Altered state of consciousness [Recovered/Resolved]
